FAERS Safety Report 7740724-1 (Version None)
Quarter: 2011Q3

REPORT INFORMATION
  Report Type: 
  Country: None (occurrence: None)
  Receive Date: 20110909
  Receipt Date: 20110907
  Transmission Date: 20111222
  Serious: Yes (Hospitalization, Other)
  Sender: FDA-Public Use
  Company Number: US-JNJFOC-20110206646

PATIENT
  Sex: Male
  Weight: 99.79 kg

DRUGS (7)
  1. TWYNSTA [Concomitant]
     Indication: HYPERTENSION
  2. STELARA [Suspect]
     Route: 058
     Dates: start: 20100831
  3. ZOLOFT [Concomitant]
     Indication: DEPRESSION
  4. PRILOSEC [Concomitant]
  5. STELARA [Suspect]
     Indication: PSORIASIS
     Route: 058
     Dates: start: 20100701
  6. STELARA [Suspect]
     Route: 058
     Dates: start: 20100504
  7. STELARA [Suspect]
     Route: 058
     Dates: start: 20101207

REACTIONS (4)
  - LETHARGY [None]
  - AMNESIA [None]
  - TRANSIENT ISCHAEMIC ATTACK [None]
  - INCOHERENT [None]
